FAERS Safety Report 6913407-5 (Version None)
Quarter: 2010Q3

REPORT INFORMATION
  Report Type: 
  Country: None (occurrence: None)
  Receive Date: 20100809
  Receipt Date: 20100726
  Transmission Date: 20110219
  Serious: Yes (Hospitalization, Other)
  Sender: FDA-Public Use
  Company Number: US-ELI_LILLY_AND_COMPANY-US201007007160

PATIENT
  Sex: Male

DRUGS (13)
  1. FORTEO [Suspect]
     Indication: DIGEORGE'S SYNDROME
     Dosage: 20 UG, DAILY (1/D)
     Dates: start: 20100101, end: 20100101
  2. FORTEO [Suspect]
     Dosage: 20 UG, DAILY (1/D)
     Dates: start: 20100101
  3. CALTRATE + VITAMIN D [Concomitant]
     Dosage: 20 D/F, DAILY (1/D)
  4. CALCIUM [Concomitant]
     Dosage: UNK, MONTHLY (1/M)
  5. CALCITRIOL [Concomitant]
     Dosage: 0.5 MG, 2/D
  6. FERROUS SULFATE [Concomitant]
     Dosage: 0.325 MG, DAILY (1/D)
  7. REMERON [Concomitant]
     Indication: ANXIETY
     Dosage: 30 MG, DAILY (1/D)
  8. MAGNESIUM [Concomitant]
     Dosage: 64 MG, DAILY (1/D)
  9. LEVOTHYROXINE [Concomitant]
     Dosage: 112 MG, DAILY (1/D)
  10. HYDROCHLOROTHIAZIDE [Concomitant]
     Indication: BLOOD PRESSURE
     Dosage: 12.5 MG, DAILY (1/D)
  11. GABAPENTIN [Concomitant]
     Dosage: 600 MG, 4/D
  12. VITAMIN B-12 [Concomitant]
     Dosage: 1000 MG, MONTHLY (1/M)
  13. NEXIUM [Concomitant]
     Dosage: 40 MG, DAILY (1/D)

REACTIONS (6)
  - ASTHENIA [None]
  - BLOOD CALCIUM DECREASED [None]
  - CONVULSION [None]
  - HYPOAESTHESIA [None]
  - MUSCLE SPASMS [None]
  - OFF LABEL USE [None]
